FAERS Safety Report 5261860-8 (Version None)
Quarter: 2007Q1

REPORT INFORMATION
  Report Type: 
  Country: None (occurrence: None)
  Receive Date: 20070310
  Receipt Date: 20070223
  Transmission Date: 20070707
  Serious: Yes (Other)
  Sender: FDA-Public Use
  Company Number: PHEH2006US12698

PATIENT
  Age: 52 Year
  Sex: Female

DRUGS (9)
  1. FLUOROURACIL [Concomitant]
     Dates: start: 20020101, end: 20060101
  2. OXALIPLATIN [Concomitant]
     Dosage: 200 MG, ONCE/SINGLE
     Dates: start: 20041001, end: 20041001
  3. LEUCOVORIN CALCIUM [Concomitant]
     Indication: RECTAL CANCER
     Dosage: 810 MG, ONCE/SINGLE
     Dates: start: 20041001, end: 20041001
  4. XELODA [Concomitant]
     Dates: start: 20030901, end: 20040901
  5. ZOMETA [Suspect]
     Indication: METASTASES TO BONE
     Dosage: 4MG Q4WK
     Dates: start: 20040312, end: 20050101
  6. ZOMETA [Suspect]
     Dates: start: 20060201, end: 20060901
  7. FEOSOL [Concomitant]
  8. DURAGESIC-100 [Concomitant]
     Indication: BACK PAIN
  9. AVASTIN [Concomitant]

REACTIONS (14)
  - BONE DISORDER [None]
  - BONE PAIN [None]
  - COMPUTERISED TOMOGRAM ABNORMAL [None]
  - DENTAL OPERATION [None]
  - EXOSTOSIS [None]
  - GINGIVAL PAIN [None]
  - JAW CYST [None]
  - OSTEONECROSIS [None]
  - PELVIC MASS [None]
  - PRIMARY SEQUESTRUM [None]
  - STENT PLACEMENT [None]
  - TOOTH ABSCESS [None]
  - TOOTH EXTRACTION [None]
  - URINARY TRACT INFECTION [None]
